FAERS Safety Report 7356447-7 (Version None)
Quarter: 2011Q1

REPORT INFORMATION
  Report Type: 
  Country: None (occurrence: None)
  Receive Date: 20110316
  Receipt Date: 20110314
  Transmission Date: 20110831
  Serious: Yes (Hospitalization)
  Sender: FDA-Public Use
  Company Number: DK-PFIZER INC-2010102356

PATIENT
  Sex: Male

DRUGS (4)
  1. DEPO-MEDROL [Suspect]
     Indication: SEASONAL ALLERGY
     Dosage: 2 ML, SINGLE
     Dates: start: 20070604, end: 20070604
  2. DIPROSPAN [Suspect]
     Indication: SEASONAL ALLERGY
     Dosage: 1 ML, SINGLE
     Dates: start: 20070607, end: 20070607
  3. BENADRYL [Concomitant]
  4. LIVOSTIN [Concomitant]

REACTIONS (2)
  - BIPOLAR I DISORDER [None]
  - SELF ESTEEM DECREASED [None]
